FAERS Safety Report 9903735 (Version 3)
Quarter: 2014Q2

REPORT INFORMATION
  Report Type: Report from Study
  Country: US (occurrence: US)
  Receive Date: 20140218
  Receipt Date: 20140613
  Transmission Date: 20141212
  Serious: Yes (Hospitalization, Other)
  Sender: FDA-Public Use
  Company Number: US-ROCHE-1348884

PATIENT
  Sex: Female

DRUGS (9)
  1. PEGASYS [Suspect]
     Indication: HEPATITIS C
     Route: 058
     Dates: start: 20131115, end: 20140522
  2. COPEGUS [Suspect]
     Indication: HEPATITIS C
     Route: 048
  3. COPEGUS [Suspect]
     Dosage: TAKES 3 IN AM AND 2 IN PM
     Route: 048
     Dates: start: 20131115, end: 20140522
  4. TELAPREVIR [Suspect]
     Indication: HEPATITIS C
     Dosage: TAKE WITH FAT
     Route: 048
     Dates: start: 20131115, end: 20140129
  5. NORVASC [Concomitant]
     Indication: HYPERTENSION
  6. LISINOPRIL/HCTZ [Concomitant]
     Indication: HYPERTENSION
  7. REMERON [Concomitant]
     Dosage: AT BEDTIME
     Route: 048
  8. PROZAC [Concomitant]
     Indication: DEPRESSION
     Route: 048
  9. MOBIC [Concomitant]
     Indication: ARTHRALGIA

REACTIONS (5)
  - Benign ovarian tumour [Recovered/Resolved]
  - Gallbladder disorder [Recovered/Resolved]
  - Ovarian mass [Unknown]
  - Malaise [Unknown]
  - Viral load increased [Not Recovered/Not Resolved]
